FAERS Safety Report 5062335-1 (Version None)
Quarter: 2006Q3

REPORT INFORMATION
  Report Type: 
  Country: None (occurrence: None)
  Receive Date: 20060721
  Receipt Date: 20060711
  Transmission Date: 20061208
  Serious: Yes (Other)
  Sender: FDA-Public Use
  Company Number: 2006080122

PATIENT
  Age: 62 Year
  Sex: Male

DRUGS (8)
  1. ATORVASTATIN CALCIUM [Suspect]
     Indication: CEREBROVASCULAR ACCIDENT
     Dosage: 40 MG (1 IN 1 D), ORAL
     Route: 048
     Dates: start: 20020101
  2. MAGNESIUM (MAGNESIUM) [Concomitant]
  3. FOLIC ACID [Concomitant]
  4. RAMIPRIL [Concomitant]
  5. ISCOVER (CLOPIDOGREL SULFATE) [Concomitant]
  6. CARVEDILOL [Concomitant]
  7. EZETROL (EZETIMIBE) [Concomitant]
  8. ALL OTHER THERAPEUTIC PRODUCTS (ALL OTHER THERAPEUTIC PRODUCTS) [Concomitant]

REACTIONS (5)
  - BLOOD CREATINE PHOSPHOKINASE INCREASED [None]
  - BLOOD CREATINE PHOSPHOKINASE MB INCREASED [None]
  - MUSCLE SPASMS [None]
  - MUSCLE TWITCHING [None]
  - MYALGIA [None]
